FAERS Safety Report 8614800 (Version 3)
Quarter: 2013Q1

REPORT INFORMATION
  Report Type: Report from Study
  Country: CA (occurrence: CA)
  Receive Date: 20120614
  Receipt Date: 20130205
  Transmission Date: 20140127
  Serious: Yes (Hospitalization)
  Sender: FDA-Public Use
  Company Number: CA-ABBOTT-12P-028-0943630-00

PATIENT
  Age: 77 Year
  Sex: Male
  Weight: 67.65 kg

DRUGS (2)
  1. LUPRON DEPOT 30 MG [Suspect]
     Indication: PROSTATE CANCER
     Dates: start: 20110622
  2. LACTULOSE [Concomitant]
     Indication: PRODUCT USED FOR UNKNOWN INDICATION
     Dosage: BID PRN

REACTIONS (4)
  - Haemoglobin abnormal [Unknown]
  - Dyspnoea [Unknown]
  - Bone pain [Unknown]
  - Weight increased [Unknown]
